FAERS Safety Report 21518484 (Version 5)
Quarter: 2024Q3

REPORT INFORMATION
  Report Type: Spontaneous
  Country: CA (occurrence: CA)
  Receive Date: 20221028
  Receipt Date: 20240720
  Transmission Date: 20241017
  Serious: Yes (Other)
  Sender: CELLTRION
  Company Number: CA-CELLTRION INC.-2022CA012732

PATIENT

DRUGS (12)
  1. INFLECTRA [Suspect]
     Active Substance: INFLIXIMAB-DYYB
     Indication: Crohn^s disease
     Dosage: 300 MG, EVERY 8 WEEKS
     Route: 042
     Dates: start: 20180910, end: 20190408
  2. INFLECTRA [Suspect]
     Active Substance: INFLIXIMAB-DYYB
     Dosage: 300 MG, EVERY 8 WEEKS
     Route: 042
     Dates: start: 20190408
  3. INFLECTRA [Suspect]
     Active Substance: INFLIXIMAB-DYYB
     Dosage: 400 MG, EVERY 8 WEEKS
     Route: 042
     Dates: start: 20190603, end: 20220711
  4. INFLECTRA [Suspect]
     Active Substance: INFLIXIMAB-DYYB
     Dosage: 600 MG AT 0,2 ,6, THEN EVERY 8 WEEKS (PATIENT RECEIVED THEIR WEEK 0 RE-INDUCTION INFUSION )
     Route: 042
     Dates: start: 20220816
  5. INFLECTRA [Suspect]
     Active Substance: INFLIXIMAB-DYYB
     Dosage: 600 MG AT 0,2 ,6, THEN EVERY 8 WEEKS
     Route: 042
     Dates: start: 20220902
  6. INFLECTRA [Suspect]
     Active Substance: INFLIXIMAB-DYYB
     Dosage: 600 MG AT 0,2 ,6, THEN EVERY 8 WEEKS
     Route: 042
     Dates: start: 20220927
  7. INFLECTRA [Suspect]
     Active Substance: INFLIXIMAB-DYYB
     Dosage: 600 MG, EVERY 8 WEEKS
     Route: 042
  8. INFLECTRA [Suspect]
     Active Substance: INFLIXIMAB-DYYB
     Dosage: 900 MG, EVERY 8 WEEKS
     Dates: start: 20240605
  9. IMURAN [Concomitant]
     Active Substance: AZATHIOPRINE
     Dosage: 1 DF, DOSAGE INFORMATION NOT AVAILABLE
  10. MORPHINE [Concomitant]
     Active Substance: MORPHINE
     Indication: Arthralgia
     Dosage: 1 DF, DOSAGE INFORMATION NOT AVAILABLE
  11. MORPHINE [Concomitant]
     Active Substance: MORPHINE
     Indication: Myalgia
  12. PREDNISONE [Concomitant]
     Active Substance: PREDNISONE
     Dosage: 20MG TAPERING BY 5MG/WEEK
     Route: 048

REACTIONS (10)
  - Ileocolectomy [Unknown]
  - Stricturoplasty [Unknown]
  - Drug level decreased [Unknown]
  - Drug level below therapeutic [Unknown]
  - Condition aggravated [Unknown]
  - C-reactive protein increased [Not Recovered/Not Resolved]
  - Off label use [Unknown]
  - Off label use [Unknown]
  - Off label use [Unknown]
  - Intentional product use issue [Unknown]

NARRATIVE: CASE EVENT DATE: 20220101
